FAERS Safety Report 24912355 (Version 3)
Quarter: 2025Q2

REPORT INFORMATION
  Report Type: Report from Study
  Country: CA (occurrence: CA)
  Receive Date: 20250131
  Receipt Date: 20250430
  Transmission Date: 20250717
  Serious: Yes (Other)
  Sender: CSL BEHRING
  Company Number: CA-BEH-2024185534

PATIENT
  Age: 54 Year
  Sex: Female
  Weight: 59 kg

DRUGS (14)
  1. HIZENTRA [Suspect]
     Active Substance: HUMAN IMMUNOGLOBULIN G
     Indication: Secondary immunodeficiency
     Dosage: 8 G, QW
     Route: 065
     Dates: start: 20241016
  2. HIZENTRA [Suspect]
     Active Substance: HUMAN IMMUNOGLOBULIN G
     Dosage: 8 G, QW
     Route: 065
     Dates: start: 20241016
  3. HIZENTRA [Suspect]
     Active Substance: HUMAN IMMUNOGLOBULIN G
     Route: 058
     Dates: start: 20241016
  4. HIZENTRA [Suspect]
     Active Substance: HUMAN IMMUNOGLOBULIN G
     Route: 058
     Dates: start: 20241016
  5. HIZENTRA [Suspect]
     Active Substance: HUMAN IMMUNOGLOBULIN G
     Dosage: 8 G, QW
     Route: 058
     Dates: start: 20241016
  6. VYVANSE [Concomitant]
     Active Substance: LISDEXAMFETAMINE DIMESYLATE
     Indication: Attention deficit hyperactivity disorder
  7. RESTASIS [Concomitant]
     Active Substance: CYCLOSPORINE
  8. RIBOCICLIB [Concomitant]
     Active Substance: RIBOCICLIB
  9. LETROZOLE [Concomitant]
     Active Substance: LETROZOLE
  10. LEUPROLIDE [Concomitant]
     Active Substance: LEUPROLIDE
     Route: 058
  11. DENOSUMAB [Concomitant]
     Active Substance: DENOSUMAB
     Route: 058
  12. SYNTHROID [Concomitant]
     Active Substance: LEVOTHYROXINE SODIUM
  13. FAMOTIDINE [Concomitant]
     Active Substance: FAMOTIDINE
  14. RUPATADINE [Concomitant]
     Active Substance: RUPATADINE

REACTIONS (9)
  - Neuropathy peripheral [Unknown]
  - Neuromyopathy [Unknown]
  - Fatigue [Recovered/Resolved]
  - Headache [Recovering/Resolving]
  - Product use complaint [Unknown]
  - Therapy interrupted [Unknown]
  - Treatment delayed [Unknown]
  - Muscular weakness [Unknown]
  - Drug intolerance [Unknown]

NARRATIVE: CASE EVENT DATE: 20241101
